FAERS Safety Report 22284473 (Version 1)
Quarter: 2023Q2

REPORT INFORMATION
  Report Type: Spontaneous
  Country: US (occurrence: None)
  Receive Date: 20230503
  Receipt Date: 20230503
  Transmission Date: 20230721
  Serious: Yes (Life-Threatening, Hospitalization, Disabling, Other)
  Sender: FDA-Public Use
  Company Number: None

PATIENT
  Age: 62 Year
  Sex: Male
  Weight: 76.5 kg

DRUGS (5)
  1. CLONAZEPAM [Suspect]
     Active Substance: CLONAZEPAM
     Indication: Anxiety
     Dosage: OTHER QUANTITY : 1 TABLET(S);?FREQUENCY : TWICE A DAY;?
     Route: 048
  2. CLONAZEPAM [Suspect]
     Active Substance: CLONAZEPAM
     Indication: Insomnia
  3. CLONAZEPAM [Concomitant]
     Active Substance: CLONAZEPAM
  4. VITAMINS [Concomitant]
     Active Substance: VITAMINS
  5. MELATONIN [Concomitant]
     Active Substance: MELATONIN

REACTIONS (24)
  - Drug dependence [None]
  - Withdrawal syndrome [None]
  - Tinnitus [None]
  - Headache [None]
  - Anxiety [None]
  - Tinnitus [None]
  - Akathisia [None]
  - Agoraphobia [None]
  - Anxiety [None]
  - Insomnia [None]
  - Morbid thoughts [None]
  - Crying [None]
  - Fear [None]
  - Muscular weakness [None]
  - Memory impairment [None]
  - Derealisation [None]
  - Blood pressure abnormal [None]
  - Hyperacusis [None]
  - Palpitations [None]
  - Paraesthesia [None]
  - Photophobia [None]
  - Brain injury [None]
  - Grimacing [None]
  - Post-acute COVID-19 syndrome [None]

NARRATIVE: CASE EVENT DATE: 20220315
